FAERS Safety Report 6160416-2 (Version None)
Quarter: 2009Q2

REPORT INFORMATION
  Report Type: 
  Country: None (occurrence: None)
  Receive Date: 20090415
  Receipt Date: 20090415
  Transmission Date: 20091009
  Serious: Yes (Other)
  Sender: FDA-Public Use
  Company Number: None

PATIENT
  Sex: Female
  Weight: 63.41 kg

DRUGS (3)
  1. LISINOPRIL [Suspect]
     Dosage: 5MG TABLET 5 MG QD ORAL
     Route: 048
     Dates: start: 20081120, end: 20090415
  2. ATENOLOL [Concomitant]
  3. SIMVASTATIN [Concomitant]

REACTIONS (1)
  - COUGH [None]
